FAERS Safety Report 4914891-9 (Version None)
Quarter: 2006Q1

REPORT INFORMATION
  Report Type: 
  Country: None (occurrence: None)
  Receive Date: 20060217
  Receipt Date: 20000911
  Transmission Date: 20060701
  Serious: Yes (Other)
  Sender: FDA-Public Use
  Company Number: US-BOEHRINGER INGELHEIM PHARMACEUTICALS, INC.-2000-BP-01684

PATIENT
  Age: 10 Year
  Sex: Male
  Weight: 57 kg

DRUGS (5)
  1. VIRAMUNE [Suspect]
     Indication: ACQUIRED IMMUNODEFICIENCY SYNDROME
     Route: 048
     Dates: start: 19990816
  2. VIDEX [Suspect]
     Indication: HIV INFECTION
     Route: 048
     Dates: start: 19990513
  3. 3TC [Suspect]
     Indication: HIV INFECTION
     Route: 048
     Dates: start: 19990513
  4. NELFINAVIR [Suspect]
     Indication: HIV INFECTION
     Route: 048
     Dates: start: 19990513
  5. SEPTRA DS [Concomitant]
     Route: 048

REACTIONS (2)
  - PROTEINURIA [None]
  - SINUSITIS [None]
